FAERS Safety Report 16129828 (Version 4)
Quarter: 2020Q1

REPORT INFORMATION
  Report Type: Spontaneous
  Country: PT (occurrence: PT)
  Receive Date: 20190328
  Receipt Date: 20200106
  Transmission Date: 20200409
  Serious: Yes (Hospitalization, Other)
  Sender: FDA-Public Use
  Company Number: TR-SA-2019SA080421

PATIENT
  Age: 71 Year
  Sex: Male

DRUGS (16)
  1. DABIGATRAN [Suspect]
     Active Substance: DABIGATRAN
     Dosage: 110 MG, QD
  2. INSULIN LISPRO [Suspect]
     Active Substance: INSULIN LISPRO
     Indication: DRUG THERAPY
     Dosage: UNK UNK, UNK
     Route: 065
  3. INSULIN GLARGINE [Suspect]
     Active Substance: INSULIN GLARGINE
     Dosage: UNK UNK, UNK
     Route: 065
  4. JARDIANCE [Interacting]
     Active Substance: EMPAGLIFLOZIN
     Indication: TYPE 2 DIABETES MELLITUS
     Dosage: 10 MG, QD
     Route: 065
  5. IRBESARTAN. [Suspect]
     Active Substance: IRBESARTAN
     Dosage: 150 MG, QD
     Route: 065
  6. RAMIPRIL. [Suspect]
     Active Substance: RAMIPRIL
     Dosage: 10 MG, QD
     Route: 065
  7. SILODOSIN. [Concomitant]
     Active Substance: SILODOSIN
     Dosage: 8 MG, QD
  8. ISOSORBIDE MONONITRATE. [Suspect]
     Active Substance: ISOSORBIDE MONONITRATE
     Dosage: 60 MG, QD
     Route: 065
  9. BROMAZEPAM [Suspect]
     Active Substance: BROMAZEPAM
     Dosage: UNK UNK, UNK
     Route: 065
  10. EZETIMIBE. [Suspect]
     Active Substance: EZETIMIBE
     Dosage: 10 MG, QD
     Route: 065
  11. INSULIN GLARGINE [Suspect]
     Active Substance: INSULIN GLARGINE
     Dosage: 26 IU, QD
  12. INDAPAMIDE. [Suspect]
     Active Substance: INDAPAMIDE
     Dosage: 1.5 MG, QD
     Route: 065
  13. ROSUVASTATIN. [Suspect]
     Active Substance: ROSUVASTATIN
     Dosage: 10 MG, QD
     Route: 065
  14. LINAGLIPTIN [Suspect]
     Active Substance: LINAGLIPTIN
     Dosage: UNK UNK, UNK
     Route: 065
  15. LINAGLIPTIN;METFORMIN [Suspect]
     Active Substance: LINAGLIPTIN\METFORMIN HYDROCHLORIDE
     Dosage: FORM STRENGTH: 850+2.5 MILLIGRAM
     Route: 065
  16. EMPAGLIFLOZIN [Interacting]
     Active Substance: EMPAGLIFLOZIN

REACTIONS (19)
  - Dehydration [Recovered/Resolved]
  - Skin disorder [Recovered/Resolved]
  - Dizziness [Unknown]
  - Presyncope [Recovered/Resolved]
  - Bradycardia [Recovered/Resolved]
  - Pulmonary congestion [Unknown]
  - Hypovolaemia [Recovered/Resolved]
  - Haemoglobin increased [Recovered/Resolved]
  - Drug interaction [Unknown]
  - Renal disorder [Unknown]
  - Syncope [Recovered/Resolved]
  - Mucosal dryness [Recovered/Resolved]
  - Hypotension [Recovered/Resolved]
  - Arrhythmia [Recovered/Resolved]
  - Oedema peripheral [Unknown]
  - Left atrial dilatation [Recovered/Resolved]
  - Acute kidney injury [Recovered/Resolved]
  - Haematocrit increased [Recovered/Resolved]
  - Atrial fibrillation [Recovered/Resolved]
